FAERS Safety Report 10159420 (Version 2)
Quarter: 2014Q2

REPORT INFORMATION
  Report Type: Report from Study
  Country: CN (occurrence: CN)
  Receive Date: 20140508
  Receipt Date: 20140508
  Transmission Date: 20141212
  Serious: Yes (Hospitalization)
  Sender: FDA-Public Use
  Company Number: CN-ASTELLAS-2014US004370

PATIENT
  Age: 61 Year
  Sex: Female

DRUGS (3)
  1. ERLOTINIB [Suspect]
     Indication: NON-SMALL CELL LUNG CANCER
     Route: 048
     Dates: start: 20130814
  2. ERLOTINIB [Suspect]
     Route: 048
  3. ERLOTINIB [Suspect]
     Route: 048

REACTIONS (4)
  - Mouth ulceration [Unknown]
  - Investigation abnormal [Unknown]
  - Diarrhoea [Unknown]
  - Rash [Unknown]
